FAERS Safety Report 9607706 (Version 1)
Quarter: 2013Q4

REPORT INFORMATION
  Report Type: Spontaneous
  Country: FR (occurrence: FR)
  Receive Date: 20131009
  Receipt Date: 20131009
  Transmission Date: 20140711
  Serious: Yes (Hospitalization, Other)
  Sender: FDA-Public Use
  Company Number: FR-009507513-1310FRA001617

PATIENT
  Age: 73 Year
  Sex: Male

DRUGS (11)
  1. VELMETIA [Suspect]
     Indication: TYPE 2 DIABETES MELLITUS
     Dosage: 1 DF, BID
     Route: 048
     Dates: start: 201109, end: 20130827
  2. FLUDEX [Suspect]
     Indication: HYPERTENSION
     Dosage: UNK, UNKNOWN
     Route: 048
     Dates: start: 2004, end: 20130827
  3. APROVEL [Suspect]
     Indication: HYPERTENSION
     Dosage: 300 MG, QD
     Route: 048
     Dates: start: 2004, end: 20130827
  4. APROVEL [Suspect]
     Dosage: UNK, UNKNOWN
     Dates: start: 20130830
  5. DETENSIEL [Suspect]
     Indication: HYPERTENSION
     Dosage: 10 MG, QD
     Route: 048
     Dates: start: 2004, end: 20130827
  6. PREVISCAN [Suspect]
     Indication: PARACHUTE MITRAL VALVE
     Dosage: 15 MG, QD
     Route: 048
     Dates: start: 2004, end: 20130827
  7. PREVISCAN [Suspect]
     Dosage: UNK, UNKNOWN
     Route: 048
     Dates: start: 20130829
  8. CRESTOR [Suspect]
     Indication: PRODUCT USED FOR UNKNOWN INDICATION
     Dosage: 5 MG, QD
     Route: 065
     Dates: start: 2004, end: 20130827
  9. AMAREL [Suspect]
     Indication: PRODUCT USED FOR UNKNOWN INDICATION
     Dosage: UNK, UNKNOWN
     Route: 048
     Dates: end: 20130824
  10. BISOPROLOL FUMARATE (+) HYDROCHLOROTHIAZIDE [Concomitant]
     Dosage: UNK
     Dates: start: 20130829
  11. METFORMIN [Concomitant]
     Dosage: UNK
     Dates: start: 20130830

REACTIONS (5)
  - Pancreatitis acute [Recovered/Resolved]
  - Renal failure acute [Unknown]
  - International normalised ratio increased [Unknown]
  - Drug level above therapeutic [Unknown]
  - Hypoglycaemia [Unknown]
